FAERS Safety Report 7707425-7 (Version None)
Quarter: 2011Q3

REPORT INFORMATION
  Report Type: 
  Country: None (occurrence: None)
  Receive Date: 20110824
  Receipt Date: 20110805
  Transmission Date: 20111222
  Serious: No
  Sender: FDA-Public Use
  Company Number: US-CEPHALON-2011004370

PATIENT

DRUGS (1)
  1. FENTORA [Suspect]
     Route: 002

REACTIONS (1)
  - DRUG PRESCRIBING ERROR [None]
